FAERS Safety Report 4343120-2 (Version None)
Quarter: 2004Q2

REPORT INFORMATION
  Report Type: 
  Country: None (occurrence: None)
  Receive Date: 20040421
  Receipt Date: 20040213
  Transmission Date: 20050107
  Serious: Yes (Other)
  Sender: FDA-Public Use
  Company Number: GB-GLAXOSMITHKLINE-B0323932A

PATIENT
  Age: 68 Year
  Sex: Female

DRUGS (1)
  1. CIMETIDINE HCL [Suspect]
     Dosage: 400MG TWICE PER DAY
     Route: 048
     Dates: start: 20031218, end: 20040204

REACTIONS (5)
  - BALANCE DISORDER [None]
  - DIFFICULTY IN WALKING [None]
  - DIZZINESS [None]
  - EAR DISCOMFORT [None]
  - TRANSIENT ISCHAEMIC ATTACK [None]
